FAERS Safety Report 5352479-9 (Version None)
Quarter: 2007Q2

REPORT INFORMATION
  Report Type: 
  Country: None (occurrence: None)
  Receive Date: 20070611
  Receipt Date: 20070606
  Transmission Date: 20071010
  Serious: Yes (Hospitalization)
  Sender: FDA-Public Use
  Company Number: B0473613A

PATIENT
  Age: 74 Year
  Sex: Female
  Weight: 66 kg

DRUGS (9)
  1. ARIXTRA [Suspect]
     Indication: DRUG USE FOR UNKNOWN INDICATION
     Dosage: 2.5MG PER DAY
     Route: 058
     Dates: end: 20070511
  2. CLAMOXYL [Concomitant]
  3. CIFLOX [Concomitant]
  4. AMLOR [Concomitant]
  5. TRIATEC [Concomitant]
  6. LEVOTHYROXINE SODIUM [Concomitant]
  7. CONTRAMAL [Concomitant]
  8. LORAZEPAM [Concomitant]
  9. KAYEXALATE [Concomitant]

REACTIONS (3)
  - ANAEMIA [None]
  - MUSCLE HAEMORRHAGE [None]
  - RENAL FAILURE ACUTE [None]
